FAERS Safety Report 7365150-9 (Version None)
Quarter: 2011Q1

REPORT INFORMATION
  Report Type: 
  Country: None (occurrence: None)
  Receive Date: 20110321
  Receipt Date: 20110307
  Transmission Date: 20110831
  Serious: Yes (Death, Other)
  Sender: FDA-Public Use
  Company Number: FR-GENENTECH-306206

PATIENT

DRUGS (5)
  1. ACETAMINOPHEN [Concomitant]
     Indication: PROPHYLAXIS
     Dosage: UNK
  2. RITUXIMAB [Suspect]
     Indication: SYSTEMIC LUPUS ERYTHEMATOSUS
     Dosage: UNK
     Route: 042
  3. RITUXIMAB [Suspect]
     Dosage: FORM: INFUSION.
     Route: 042
  4. ACETAMINOPHEN [Concomitant]
     Dosage: PREMEDICATION BEFORE RITUXIMAB INFUSION
  5. METHYLPREDNISOLONE [Concomitant]
     Indication: PROPHYLAXIS
     Dosage: 100 MG, UNK

REACTIONS (9)
  - ENDOCARDITIS [None]
  - PAIN [None]
  - SERUM SICKNESS-LIKE REACTION [None]
  - INFECTION [None]
  - ASTHENIA [None]
  - SEPSIS [None]
  - INFUSION RELATED REACTION [None]
  - EMBOLISM ARTERIAL [None]
  - CHOLANGITIS [None]
